FAERS Safety Report 8599355 (Version 3)
Quarter: 2015Q4

REPORT INFORMATION
  Report Type: Spontaneous
  Country: US (occurrence: US)
  Receive Date: 20120605
  Receipt Date: 20151204
  Transmission Date: 20160305
  Serious: Yes (Hospitalization, Congenital Anomaly, Other)
  Sender: FDA-Public Use
  Company Number: US-GLAXOSMITHKLINE-A0979889A

PATIENT
  Age: 0 Day
  Sex: Male

DRUGS (4)
  1. PAXIL [Suspect]
     Active Substance: PAROXETINE HYDROCHLORIDE
     Indication: DEPRESSION
     Dosage: UNK, U
     Route: 064
  2. VITAMINS [Concomitant]
     Active Substance: VITAMINS
  3. NIFEDIPINE. [Concomitant]
     Active Substance: NIFEDIPINE
  4. ZANTAC [Concomitant]
     Active Substance: RANITIDINE HYDROCHLORIDE

REACTIONS (10)
  - Developmental delay [Unknown]
  - Cardiac murmur [Unknown]
  - Autism spectrum disorder [Unknown]
  - Speech disorder [Unknown]
  - Ventricular septal defect [Unknown]
  - Respiratory disorder neonatal [Unknown]
  - Cardiac failure congestive [Unknown]
  - Enuresis [Unknown]
  - Foetal exposure during pregnancy [Unknown]
  - Attention deficit/hyperactivity disorder [Unknown]

NARRATIVE: CASE EVENT DATE: 20021204
